FAERS Safety Report 8310050-0 (Version None)
Quarter: 2012Q2

REPORT INFORMATION
  Report Type: 
  Country: None (occurrence: None)
  Receive Date: 20120425
  Receipt Date: 20120413
  Transmission Date: 20120825
  Serious: Yes (Death)
  Sender: FDA-Public Use
  Company Number: DE-UCBSA-055660

PATIENT
  Age: 81 Year
  Sex: Female

DRUGS (4)
  1. LACOSAMIDE [Suspect]
     Route: 042
  2. PROPOFOL [Concomitant]
     Indication: STATUS EPILEPTICUS
     Dosage: 2 %
  3. LACOSAMIDE [Suspect]
     Indication: STATUS EPILEPTICUS
     Route: 042
  4. LEVETIRACETAM [Concomitant]
     Indication: STATUS EPILEPTICUS
     Dosage: 3000 MG

REACTIONS (1)
  - PNEUMONIA [None]
